FAERS Safety Report 5696598-6 (Version None)
Quarter: 2008Q2

REPORT INFORMATION
  Report Type: 
  Country: None (occurrence: None)
  Receive Date: 20080408
  Receipt Date: 20080403
  Transmission Date: 20081010
  Serious: Yes (Death)
  Sender: FDA-Public Use
  Company Number: RU-NOVOPROD-273762

PATIENT

DRUGS (1)
  1. NOVOSEVEN [Suspect]
     Indication: UTERINE HAEMORRHAGE
     Dates: start: 20080301, end: 20080301

REACTIONS (2)
  - DISSEMINATED INTRAVASCULAR COAGULATION [None]
  - SHOCK HAEMORRHAGIC [None]
